FAERS Safety Report 12539687 (Version 3)
Quarter: 2016Q4

REPORT INFORMATION
  Report Type: Report from Study
  Country: AT (occurrence: AT)
  Receive Date: 20160708
  Receipt Date: 20161013
  Transmission Date: 20170207
  Serious: Yes (Hospitalization, Disabling, Other)
  Sender: FDA-Public Use
  Company Number: AT-CELGENEUS-AUT-2016060052

PATIENT
  Age: 74 Year
  Sex: Male
  Weight: 85 kg

DRUGS (35)
  1. REVLIMID [Suspect]
     Active Substance: LENALIDOMIDE
     Indication: PLASMA CELL MYELOMA
     Route: 048
     Dates: start: 20110705
  2. DEXAMETHASONE. [Suspect]
     Active Substance: DEXAMETHASONE
     Indication: PLASMA CELL MYELOMA
     Dosage: 4 GRAM
     Route: 065
     Dates: start: 20110705
  3. ORTHOMOL IMMUN [Concomitant]
     Active Substance: IRON\MINERALS\VITAMINS
     Indication: PROPHYLAXIS
     Dosage: 1 DOSAGE FORMS
     Route: 048
     Dates: start: 20120326
  4. REVLIMID [Suspect]
     Active Substance: LENALIDOMIDE
     Dosage: 20 DROPS
     Route: 048
     Dates: start: 20160427
  5. BEPANTHEN SENSIDERM [Concomitant]
     Indication: SOLAR DERMATITIS
     Route: 061
     Dates: start: 20150909
  6. CALCIMAGON [Concomitant]
     Active Substance: CALCIUM
     Indication: CALCIUM DEFICIENCY
     Route: 048
     Dates: start: 20141218
  7. DIOVAN [Concomitant]
     Active Substance: VALSARTAN
     Indication: BLOOD PRESSURE INCREASED
     Route: 048
     Dates: start: 200911
  8. LACTATED RINGERS [Concomitant]
     Active Substance: CALCIUM CHLORIDE\POTASSIUM CHLORIDE\SODIUM CHLORIDE\SODIUM LACTATE
     Indication: DEHYDRATION
     Dosage: 10.8 GRAM
     Route: 041
     Dates: start: 20160518, end: 20160520
  9. LARIAM [Concomitant]
     Active Substance: MEFLOQUINE HYDROCHLORIDE
     Indication: PRODUCT USED FOR UNKNOWN INDICATION
     Route: 048
     Dates: start: 201606
  10. REVLIMID [Suspect]
     Active Substance: LENALIDOMIDE
     Route: 048
     Dates: start: 20160526
  11. LUTAMAX DUO [Concomitant]
     Indication: PROPHYLAXIS
     Dosage: 80 MILLIGRAM
     Route: 048
     Dates: start: 20110901
  12. MAXI KALZ [Concomitant]
     Indication: OSTEOPOROSIS PROPHYLAXIS
     Dosage: 1000/880 MG/I.E.
     Route: 048
     Dates: start: 201606
  13. ENTEROCOCCUS AECIUM [Concomitant]
     Dosage: 75 M
     Route: 048
     Dates: start: 20160501
  14. INEGY [Concomitant]
     Active Substance: EZETIMIBE\SIMVASTATIN
     Indication: HYPERCHOLESTEROLAEMIA
     Dosage: 10-20MG
     Route: 048
     Dates: start: 20150409
  15. LOPERAMIDE [Concomitant]
     Active Substance: LOPERAMIDE
     Indication: DIARRHOEA
     Dosage: 1000 MILLIGRAM
     Route: 048
     Dates: start: 20140920
  16. NUTRICIA FORTIFIT [Concomitant]
     Indication: PROPHYLAXIS
     Dosage: 1IE
     Route: 048
     Dates: start: 20121009
  17. PANTOLOC [Concomitant]
     Active Substance: PANTOPRAZOLE SODIUM
     Indication: GASTRITIS PROPHYLAXIS
     Route: 048
     Dates: start: 20110705
  18. REDUCTO SPECIAL [Concomitant]
     Indication: HYPOPHOSPHATAEMIA
     Route: 048
     Dates: start: 20151029
  19. BACITRACIN NEOMYCIN [Concomitant]
     Indication: SOLAR DERMATITIS
     Route: 061
     Dates: start: 20150909
  20. CO-DIOVAN [Concomitant]
     Active Substance: HYDROCHLOROTHIAZIDE\VALSARTAN
     Indication: HYPERTENSION
     Route: 048
     Dates: start: 20150827
  21. MAGNOSOLV [Concomitant]
     Indication: PROPHYLAXIS
     Dosage: 1 IE
     Route: 048
     Dates: start: 20110908
  22. ALPRAZOLAM. [Concomitant]
     Active Substance: ALPRAZOLAM
     Indication: PRODUCT USED FOR UNKNOWN INDICATION
     Route: 048
     Dates: start: 201606
  23. DEXAMETHASONE. [Suspect]
     Active Substance: DEXAMETHASONE
     Route: 065
     Dates: start: 20160527
  24. DIOVAN [Concomitant]
     Active Substance: VALSARTAN
     Indication: HYPERTENSION
     Route: 048
     Dates: start: 201606
  25. ENTEROCOCCUS AECIUM [Concomitant]
     Indication: DYSBACTERIOSIS
     Dosage: 75M IU
     Route: 048
     Dates: start: 20150730
  26. MEXALEN [Concomitant]
     Active Substance: ACETAMINOPHEN
     Indication: MYALGIA
     Dosage: .25 MILLIGRAM
     Route: 048
     Dates: start: 20150901
  27. KCL [Concomitant]
     Active Substance: POTASSIUM CHLORIDE
     Indication: PRODUCT USED FOR UNKNOWN INDICATION
     Route: 048
     Dates: start: 201606
  28. SPIRONO [Concomitant]
     Indication: PRODUCT USED FOR UNKNOWN INDICATION
     Route: 048
     Dates: start: 201606
  29. DEXAMETHASONE. [Suspect]
     Active Substance: DEXAMETHASONE
     Dosage: 40 MILLIGRAM
     Route: 065
     Dates: start: 20160428
  30. LENDORM [Concomitant]
     Active Substance: BROTIZOLAM
     Indication: INSOMNIA
     Route: 048
     Dates: start: 20140920
  31. MAXI KALZ [Concomitant]
     Indication: CALCIUM DEFICIENCY
     Route: 048
     Dates: start: 20141218
  32. MEXALEN [Concomitant]
     Active Substance: ACETAMINOPHEN
     Indication: PAIN IN EXTREMITY
     Dosage: 10 MILLIGRAM
     Route: 048
     Dates: start: 20141121
  33. OLEOVIT D3 [Concomitant]
     Active Substance: CHOLECALCIFEROL
     Indication: VITAMIN D DEFICIENCY
     Dosage: 10 MILLIGRAM
     Route: 048
     Dates: start: 20151029
  34. THROMBO ASS [Concomitant]
     Active Substance: ASPIRIN
     Indication: ANTICOAGULANT THERAPY
     Dosage: 1 DOSAGE FORMS
     Route: 048
     Dates: start: 20110705
  35. IMMUNOGLOBULIN [Concomitant]
     Active Substance: HUMAN IMMUNOGLOBULIN G
     Indication: IMMUNOGLOBULIN THERAPY
     Dosage: 1 LITERS
     Route: 041
     Dates: start: 20160721, end: 20160721

REACTIONS (1)
  - Progressive multifocal leukoencephalopathy [Not Recovered/Not Resolved]

NARRATIVE: CASE EVENT DATE: 201604
